FAERS Safety Report 8092796-5 (Version None)
Quarter: 2012Q1

REPORT INFORMATION
  Report Type: 
  Country: None (occurrence: None)
  Receive Date: 20120128
  Receipt Date: 20110815
  Transmission Date: 20120608
  Serious: No
  Sender: FDA-Public Use
  Company Number: US-ABBOTT-11P-163-0846190-00

PATIENT
  Age: 59 Year
  Sex: Female

DRUGS (15)
  1. ALBUTEROL [Concomitant]
     Indication: ASTHMA
  2. QVAR 40 [Concomitant]
     Indication: HYPERSENSITIVITY
     Route: 055
  3. QVAR 40 [Concomitant]
     Indication: ASTHMA
  4. PROTONIX [Concomitant]
     Indication: GASTROOESOPHAGEAL REFLUX DISEASE
  5. ALLEGRA [Concomitant]
     Indication: ASTHMA
  6. SINGULAIR [Concomitant]
     Indication: HYPERSENSITIVITY
  7. SPIRONALCTONE [Concomitant]
     Indication: FLUID RETENTION
  8. ALLEGRA [Concomitant]
     Indication: HYPERSENSITIVITY
  9. FISH OIL [Concomitant]
     Indication: PROPHYLAXIS
  10. VITAMIN E [Concomitant]
     Indication: PROPHYLAXIS
  11. FOLIC ACID [Concomitant]
     Indication: POLYMEDICATION
  12. HUMIRA [Suspect]
     Indication: PSORIATIC ARTHROPATHY
     Dates: start: 20070101
  13. SINGULAIR [Concomitant]
     Indication: ASTHMA
  14. CALCIUM [Concomitant]
     Indication: PROPHYLAXIS
  15. ALBUTEROL [Concomitant]
     Indication: HYPERSENSITIVITY
     Route: 055

REACTIONS (5)
  - RED BLOOD CELL SEDIMENTATION RATE INCREASED [None]
  - INFECTION [None]
  - GAIT DISTURBANCE [None]
  - LYMPHADENOPATHY [None]
  - ACTIVITIES OF DAILY LIVING IMPAIRED [None]
